FAERS Safety Report 20051253 (Version 2)
Quarter: 2022Q1

REPORT INFORMATION
  Report Type: Spontaneous
  Country: US (occurrence: US)
  Receive Date: 20211110
  Receipt Date: 20220103
  Transmission Date: 20220423
  Serious: No
  Sender: FDA-Public Use
  Company Number: US-TEVA-2021-US-1974622

PATIENT

DRUGS (2)
  1. SENOKOT [Suspect]
     Active Substance: SENNOSIDES
     Route: 065
  2. NUVIGIL [Concomitant]
     Active Substance: ARMODAFINIL
     Route: 048

REACTIONS (1)
  - Muscle spasms [Unknown]
